FAERS Safety Report 6502466-X (Version None)
Quarter: 2009Q4

REPORT INFORMATION
  Report Type: 
  Country: None (occurrence: None)
  Receive Date: 20091209
  Receipt Date: 20091127
  Transmission Date: 20100525
  Serious: Yes (Death)
  Sender: FDA-Public Use
  Company Number: CN-JNJFOC-20091107942

PATIENT
  Age: 59 Year
  Sex: Male

DRUGS (2)
  1. DACOGEN [Suspect]
     Indication: MYELODYSPLASTIC SYNDROME
     Dosage: 50 MG, INTRAVENOUS; 50 MG INTRAVENOUS
     Route: 042
     Dates: start: 20090930, end: 20091002
  2. DACOGEN [Suspect]
     Indication: MYELODYSPLASTIC SYNDROME
     Dosage: 50 MG, INTRAVENOUS; 50 MG INTRAVENOUS
     Route: 042
     Dates: start: 20090826

REACTIONS (3)
  - DYSURIA [None]
  - HYPOPHAGIA [None]
  - PYREXIA [None]
